FAERS Safety Report 9438723 (Version 1)
Quarter: 2013Q3

REPORT INFORMATION
  Report Type: Spontaneous
  Country: US (occurrence: US)
  Receive Date: 20130802
  Receipt Date: 20130802
  Transmission Date: 20140515
  Serious: Yes (Death)
  Sender: FDA-Public Use
  Company Number: US-GILEAD-2013-0080504

PATIENT
  Age: 79 Year
  Sex: Female

DRUGS (3)
  1. LETAIRIS [Suspect]
     Indication: PRODUCT USED FOR UNKNOWN INDICATION
     Route: 048
  2. REVATIO [Concomitant]
  3. TYVASO [Concomitant]

REACTIONS (1)
  - Death [Fatal]
